FAERS Safety Report 11199196 (Version 5)
Quarter: 2020Q1

REPORT INFORMATION
  Report Type: Spontaneous
  Country: US (occurrence: US)
  Receive Date: 20150618
  Receipt Date: 20200217
  Transmission Date: 20200409
  Serious: Yes (Other)
  Sender: FDA-Public Use
  Company Number: US-PFIZER INC-2015201891

PATIENT
  Sex: Female

DRUGS (4)
  1. DETROL LA [Suspect]
     Active Substance: TOLTERODINE TARTRATE
     Dosage: UNK
  2. PREDNISONE. [Concomitant]
     Active Substance: PREDNISONE
     Dosage: 60 MG, DAILY
  3. METHOTREXATE. [Concomitant]
     Active Substance: METHOTREXATE
     Dosage: UNK
     Dates: end: 201907
  4. PREDNISONE. [Concomitant]
     Active Substance: PREDNISONE
     Dosage: 20 MG, UNK

REACTIONS (10)
  - Renal failure [Unknown]
  - Rheumatoid arthritis [Unknown]
  - Product dose omission [Unknown]
  - Neoplasm malignant [Unknown]
  - Insomnia [Unknown]
  - Pain [Unknown]
  - Urinary incontinence [Unknown]
  - Systemic lupus erythematosus [Unknown]
  - Memory impairment [Unknown]
  - Malaise [Unknown]
